FAERS Safety Report 8955244 (Version 1)
Quarter: 2012Q4

REPORT INFORMATION
  Report Type: Spontaneous
  Country: ES (occurrence: None)
  Receive Date: 20121130
  Receipt Date: 20121130
  Transmission Date: 20130627
  Serious: Yes (Other)
  Sender: FDA-Public Use
  Company Number: PRED20120070

PATIENT
  Age: 22 Year
  Sex: Male

DRUGS (2)
  1. PREDNISONE [Suspect]
     Indication: NEPHROTIC SYNDROME
     Dates: start: 2006, end: 2008
  2. MYCOPHENOLATE MOFETIL [Suspect]
     Dates: start: 2006, end: 2008

REACTIONS (2)
  - Bartter^s syndrome [None]
  - Kidney fibrosis [None]
